FAERS Safety Report 10570102 (Version 1)
Quarter: 2014Q4

REPORT INFORMATION
  Report Type: Spontaneous
  Country: CN (occurrence: None)
  Receive Date: 20141105
  Receipt Date: 20141105
  Transmission Date: 20150529
  Serious: Yes (Hospitalization)
  Sender: FDA-Public Use
  Company Number: VAL_03538_2014

PATIENT
  Age: 59 Year
  Sex: Male

DRUGS (6)
  1. CELLCEPT [Suspect]
     Active Substance: MYCOPHENOLATE MOFETIL\MYCOPHENOLATE MOFETIL HYDROCHLORIDE
     Indication: RENAL TRANSPLANT
     Route: 048
     Dates: start: 201009
  2. PROGRAF [Suspect]
     Active Substance: TACROLIMUS\TACROLIMUS ANHYDROUS
     Indication: RENAL TRANSPLANT
     Dosage: DF, ORAL
     Route: 048
     Dates: start: 201009, end: 201404
  3. ROCALTROL [Suspect]
     Active Substance: CALCITRIOL
     Indication: OSTEOPOROSIS
     Dosage: DF
     Dates: start: 2011
  4. ALENDRONATE SODIUM (ALENDRONATE SODIUM) (ALENDRONATE SODIUM) [Suspect]
     Active Substance: ALENDRONATE SODIUM
     Indication: PRODUCT USED FOR UNKNOWN INDICATION
     Dosage: DF, ORAL
     Route: 048
  5. CICLOSPORIN [Concomitant]
     Active Substance: CYCLOSPORINE
  6. HERBESSER [Concomitant]
     Active Substance: DILTIAZEM HYDROCHLORIDE

REACTIONS (6)
  - Osteonecrosis [None]
  - Lung infection [None]
  - Osteoporosis [None]
  - Blood glucose increased [None]
  - Off label use [None]
  - Back pain [None]
